FAERS Safety Report 6532949-8 (Version None)
Quarter: 2010Q1

REPORT INFORMATION
  Report Type: 
  Country: None (occurrence: None)
  Receive Date: 20100105
  Receipt Date: 20091230
  Transmission Date: 20100710
  Serious: Yes (Death)
  Sender: FDA-Public Use
  Company Number: 2009US004555

PATIENT
  Age: 61 Year
  Sex: Female

DRUGS (1)
  1. PROGRAF [Suspect]
     Indication: RENAL TRANSPLANT
     Dosage: 1.5 MG, UID/QD
     Dates: start: 20030726, end: 20091006

REACTIONS (3)
  - HYPERTENSION [None]
  - MYOCARDIAL INFARCTION [None]
  - UPPER RESPIRATORY TRACT INFECTION [None]
